FAERS Safety Report 25850907 (Version 1)
Quarter: 2025Q3

REPORT INFORMATION
  Report Type: Spontaneous
  Country: JP (occurrence: JP)
  Receive Date: 20250926
  Receipt Date: 20250926
  Transmission Date: 20251020
  Serious: Yes (Hospitalization, Other)
  Sender: AMGEN
  Company Number: JP-AMGEN-JPNSP2025188085

PATIENT
  Age: 71 Year
  Sex: Male

DRUGS (1)
  1. REPATHA [Suspect]
     Active Substance: EVOLOCUMAB
     Indication: Hypercholesterolaemia
     Dosage: 140 MILLIGRAM, Q2WK
     Route: 058
     Dates: start: 2025, end: 2025

REACTIONS (1)
  - Rhabdomyolysis [Unknown]

NARRATIVE: CASE EVENT DATE: 20250917
